FAERS Safety Report 6061289-9 (Version None)
Quarter: 2009Q1

REPORT INFORMATION
  Report Type: 
  Country: None (occurrence: None)
  Receive Date: 20090202
  Receipt Date: 20090121
  Transmission Date: 20090719
  Serious: Yes (Hospitalization, Disabling, Other)
  Sender: FDA-Public Use
  Company Number: US-MERCK-0710USA04005

PATIENT
  Age: 77 Year
  Sex: Female
  Weight: 61 kg

DRUGS (9)
  1. CYANOCOBALAMIN [Concomitant]
     Indication: PERNICIOUS ANAEMIA
     Route: 030
     Dates: start: 19800101
  2. SYNTHROID [Concomitant]
     Route: 048
     Dates: start: 19580101
  3. TUMS [Concomitant]
     Route: 065
  4. EVISTA [Concomitant]
     Route: 048
     Dates: start: 20010919
  5. FOSAMAX [Suspect]
     Indication: FRACTURE
     Route: 048
     Dates: start: 19970401
  6. FOSAMAX [Suspect]
     Route: 048
     Dates: end: 20050101
  7. FOSAMAX [Suspect]
     Indication: OSTEOPOROSIS
     Route: 048
     Dates: start: 19970401
  8. FOSAMAX [Suspect]
     Route: 048
     Dates: end: 20050101
  9. MECLIZINE [Concomitant]
     Route: 048
     Dates: start: 20010913

REACTIONS (66)
  - ADVERSE DRUG REACTION [None]
  - ANAEMIA OF CHRONIC DISEASE [None]
  - ARTHRALGIA [None]
  - ASTHENIA [None]
  - BACK DISORDER [None]
  - BACK PAIN [None]
  - BASAL CELL CARCINOMA [None]
  - BONE PAIN [None]
  - BRONCHITIS [None]
  - CARDIAC TAMPONADE [None]
  - CATHETER RELATED COMPLICATION [None]
  - CHEST DISCOMFORT [None]
  - CHEST PAIN [None]
  - COUGH [None]
  - DECUBITUS ULCER [None]
  - DEEP VEIN THROMBOSIS [None]
  - DEHYDRATION [None]
  - DENTAL CARIES [None]
  - DIARRHOEA [None]
  - DIVERTICULITIS [None]
  - DYSPNOEA [None]
  - DYSPNOEA EXERTIONAL [None]
  - FACE INJURY [None]
  - FALL [None]
  - FRACTURE [None]
  - GAIT DISTURBANCE [None]
  - GASTRIC DISORDER [None]
  - GASTRITIS [None]
  - GASTROINTESTINAL DISORDER [None]
  - GASTROOESOPHAGEAL REFLUX DISEASE [None]
  - HYPOPHAGIA [None]
  - HYPOTENSION [None]
  - INTERVERTEBRAL DISC DEGENERATION [None]
  - MACULAR DEGENERATION [None]
  - MALNUTRITION [None]
  - MONONEUROPATHY [None]
  - MUCOSAL ULCERATION [None]
  - NAUSEA [None]
  - NECK PAIN [None]
  - OESOPHAGEAL CANDIDIASIS [None]
  - OESOPHAGEAL STENOSIS [None]
  - OSTEOMYELITIS [None]
  - OSTEONECROSIS [None]
  - PAIN [None]
  - PERICARDIAL HAEMORRHAGE [None]
  - PLEURAL EFFUSION [None]
  - PNEUMONIA [None]
  - POSTOPERATIVE WOUND INFECTION [None]
  - PYREXIA [None]
  - RENAL FAILURE [None]
  - RENAL FAILURE CHRONIC [None]
  - SINUS HEADACHE [None]
  - SKIN DISORDER [None]
  - SKIN ULCER [None]
  - SOFT TISSUE INJURY [None]
  - SPINAL COMPRESSION FRACTURE [None]
  - SPINAL OSTEOARTHRITIS [None]
  - STRESS [None]
  - SYNCOPE [None]
  - THROMBOCYTOPENIA [None]
  - TOOTH ABSCESS [None]
  - VERTIGO [None]
  - VITH NERVE PARALYSIS [None]
  - VOMITING [None]
  - WEIGHT DECREASED [None]
  - WOUND [None]
